FAERS Safety Report 5011700-7 (Version None)
Quarter: 2006Q2

REPORT INFORMATION
  Report Type: 
  Country: None (occurrence: None)
  Receive Date: 20060526
  Receipt Date: 20060514
  Transmission Date: 20061013
  Serious: Yes (Other)
  Sender: FDA-Public Use
  Company Number: IT-AVENTIS-200615447GDDC

PATIENT
  Age: 55 Year
  Sex: Female

DRUGS (3)
  1. ARAVA [Suspect]
     Indication: RHEUMATOID ARTHRITIS
     Route: 048
  2. ARAVA [Suspect]
     Route: 048
  3. CORTICOSTEROIDS [Concomitant]
     Dosage: DOSE: UNK

REACTIONS (2)
  - GASTROINTESTINAL NEOPLASM [None]
  - PANCREATIC NEOPLASM [None]
